FAERS Safety Report 5796338-6 (Version None)
Quarter: 2008Q2

REPORT INFORMATION
  Report Type: 
  Country: None (occurrence: None)
  Receive Date: 20080630
  Receipt Date: 20080630
  Transmission Date: 20081010
  Serious: Yes (Other)
  Sender: FDA-Public Use
  Company Number: None

PATIENT
  Age: 64 Year
  Sex: Female
  Weight: 83.9154 kg

DRUGS (1)
  1. SIMVASTATIN [Suspect]
     Indication: BLOOD CHOLESTEROL INCREASED
     Dosage: 40 MG 1X DAILY PO
     Route: 048
     Dates: start: 20080615, end: 20080621

REACTIONS (3)
  - BLISTER [None]
  - PAIN IN EXTREMITY [None]
  - PRURITUS [None]
